FAERS Safety Report 5569964-7 (Version None)
Quarter: 2007Q4

REPORT INFORMATION
  Report Type: 
  Country: None (occurrence: None)
  Receive Date: 20071217
  Receipt Date: 20071205
  Transmission Date: 20080405
  Serious: Yes (Hospitalization, Other)
  Sender: FDA-Public Use
  Company Number: A-CH2007-18492

PATIENT
  Age: 46 Year
  Sex: Female
  Weight: 50 kg

DRUGS (8)
  1. TRACLEER [Suspect]
     Indication: PULMONARY HYPERTENSION
     Dosage: 125 MG, BID, ORAL : 62.5 MG, BID, ORAL
     Route: 048
     Dates: start: 20051012, end: 20051111
  2. TRACLEER [Suspect]
     Indication: PULMONARY HYPERTENSION
     Dosage: 125 MG, BID, ORAL : 62.5 MG, BID, ORAL
     Route: 048
     Dates: start: 20051112
  3. SILDENAFIL CITRATE [Concomitant]
  4. LEVOTHYROXINE SODIUM [Concomitant]
  5. ALLOPURINOL [Concomitant]
  6. DIGOXIN [Concomitant]
  7. TORSEMIDE [Concomitant]
  8. NEXIUM [Concomitant]

REACTIONS (1)
  - JAUNDICE CHOLESTATIC [None]
